FAERS Safety Report 6913006-5 (Version None)
Quarter: 2010Q3

REPORT INFORMATION
  Report Type: 
  Country: None (occurrence: None)
  Receive Date: 20100806
  Receipt Date: 20090608
  Transmission Date: 20110219
  Serious: No
  Sender: FDA-Public Use
  Company Number: US-PFIZER INC-2009225210

PATIENT
  Sex: Male
  Weight: 75.283 kg

DRUGS (1)
  1. VFEND [Suspect]
     Dosage: DAILY
     Route: 048
     Dates: start: 20090301

REACTIONS (1)
  - TOOTH DISCOLOURATION [None]
